FAERS Safety Report 18011269 (Version 2)
Quarter: 2020Q4

REPORT INFORMATION
  Report Type: Spontaneous
  Country: US (occurrence: US)
  Receive Date: 20200712
  Receipt Date: 20201224
  Transmission Date: 20210113
  Serious: No
  Sender: FDA-Public Use
  Company Number: US-BIOGEN-2020BI00895058

PATIENT
  Sex: Male

DRUGS (2)
  1. TECFIDERA [Suspect]
     Active Substance: DIMETHYL FUMARATE
     Route: 048
     Dates: start: 2012
  2. TECFIDERA [Suspect]
     Active Substance: DIMETHYL FUMARATE
     Indication: MULTIPLE SCLEROSIS
     Route: 065
     Dates: start: 20141125

REACTIONS (10)
  - Multiple sclerosis relapse [Recovered/Resolved]
  - Anxiety [Unknown]
  - Visual impairment [Unknown]
  - Flushing [Unknown]
  - Rash [Unknown]
  - Product dose omission in error [Unknown]
  - Cognitive disorder [Unknown]
  - Incoherent [Unknown]
  - Paraesthesia [Unknown]
  - Balance disorder [Unknown]
